FAERS Safety Report 9383975 (Version 4)
Quarter: 2013Q3

REPORT INFORMATION
  Report Type: Spontaneous
  Country: US (occurrence: US)
  Receive Date: 20130705
  Receipt Date: 20130813
  Transmission Date: 20140515
  Serious: Yes (Death, Hospitalization, Other)
  Sender: FDA-Public Use
  Company Number: US-AMGEN-USASP2013046210

PATIENT
  Age: 81 Year
  Sex: Female

DRUGS (2)
  1. PROLIA [Suspect]
     Indication: OSTEOPOROSIS POSTMENOPAUSAL
     Dosage: 60 MG/ML, Q6MO
     Route: 058
     Dates: start: 20120131
  2. CAUMADIN [Concomitant]

REACTIONS (16)
  - Cardiac failure congestive [Fatal]
  - Ventricular arrhythmia [Fatal]
  - Atrial fibrillation [Fatal]
  - Respiratory failure [Unknown]
  - Local swelling [Not Recovered/Not Resolved]
  - Hypertension [Unknown]
  - Hypotension [Unknown]
  - Palpitations [Unknown]
  - Generalised oedema [Unknown]
  - Liver function test abnormal [Unknown]
  - Hypophagia [Unknown]
  - Liver injury [Unknown]
  - Renal failure acute [Unknown]
  - Pleural effusion [Unknown]
  - Nausea [Unknown]
  - Productive cough [Unknown]
